FAERS Safety Report 21120129 (Version 1)
Quarter: 2022Q3

REPORT INFORMATION
  Report Type: Spontaneous
  Country: JP (occurrence: JP)
  Receive Date: 20220722
  Receipt Date: 20220722
  Transmission Date: 20221027
  Serious: Yes (Other)
  Sender: FDA-Public Use
  Company Number: JP-PFIZER INC-202200988640

PATIENT

DRUGS (3)
  1. RHEUMATREX [Suspect]
     Active Substance: METHOTREXATE SODIUM
     Indication: Rheumatoid arthritis
     Dosage: MORNING AND EVENING
     Route: 048
  2. RHEUMATREX [Suspect]
     Active Substance: METHOTREXATE SODIUM
     Indication: Arthralgia
     Dosage: IN THE MORNING, EVENING AND MORNING OF THE SECOND DAY
     Route: 048
  3. LEUCOVORIN [Concomitant]
     Active Substance: LEUCOVORIN
     Dosage: 10 MG

REACTIONS (2)
  - Altered state of consciousness [Unknown]
  - Eructation [Unknown]
